FAERS Safety Report 8207108-3 (Version None)
Quarter: 2012Q1

REPORT INFORMATION
  Report Type: 
  Country: None (occurrence: None)
  Receive Date: 20120312
  Receipt Date: 20120223
  Transmission Date: 20120608
  Serious: Yes (Hospitalization)
  Sender: FDA-Public Use
  Company Number: 024490

PATIENT
  Age: 67 Year
  Sex: Male

DRUGS (12)
  1. MODURETIC 5-50 [Concomitant]
  2. ZOPRANOL (ZOFENOPRIL) [Concomitant]
  3. LERCANIDIPINE [Concomitant]
  4. ISOSORBIDE MONONITRATE [Concomitant]
  5. ATORVASTATIN CALCIUM [Concomitant]
  6. INSULIN (INSULIN) [Concomitant]
  7. TICLOPIDINE HYDROCHLORIDE [Concomitant]
  8. PEGAPTANIB SODIUM (PEGAPTANIB SODIUM) UNKNOWN [Suspect]
     Indication: AGE-RELATED MACULAR DEGENERATION
     Dosage: 0.3 MG, EVERY 6 WEEKS, INTRAOCULAR
     Route: 031
     Dates: start: 20100208, end: 20100929
  9. METFORMIN HCL [Concomitant]
  10. DILTIAZEM [Concomitant]
  11. FUROSEMIDE (FUROSEMIDE) [Concomitant]
  12. ATENOLOL [Concomitant]

REACTIONS (2)
  - ANGINA UNSTABLE [None]
  - MYOCARDIAL INFARCTION [None]
